FAERS Safety Report 8913785 (Version 1)
Quarter: 2012Q4

REPORT INFORMATION
  Report Type: 
  Country: US (occurrence: US)
  Receive Date: 20121119
  Receipt Date: 20121119
  Transmission Date: 20130627
  Serious: Yes (Other)
  Sender: FDA-Public Use
  Company Number: US-B.I. PHARMACEUTICALS,INC./RIDGEFIELD-2012-BI-00367BP

PATIENT
  Sex: Female

DRUGS (1)
  1. MELOXICAM [Suspect]

REACTIONS (1)
  - Lymphoma [Unknown]
